FAERS Safety Report 24971354 (Version 1)
Quarter: 2025Q1

REPORT INFORMATION
  Report Type: Spontaneous
  Country: US (occurrence: US)
  Receive Date: 20250214
  Receipt Date: 20250214
  Transmission Date: 20250409
  Serious: Yes (Life-Threatening)
  Sender: QUVA PHARMA
  Company Number: US-QuVa Pharma-2170768

PATIENT
  Age: 24 Year
  Sex: Female
  Weight: 70 kg

DRUGS (2)
  1. OXYTOCIN\SODIUM CHLORIDE - HUMAN COMPOUNDED DRUG [Suspect]
     Active Substance: OXYTOCIN\SODIUM CHLORIDE
     Indication: Labour augmentation
     Dates: start: 20250112, end: 20250112
  2. OXYTOCIN\SODIUM CHLORIDE - HUMAN COMPOUNDED DRUG [Suspect]
     Active Substance: OXYTOCIN\SODIUM CHLORIDE
     Indication: Labour induction

REACTIONS (1)
  - Bradycardia foetal [Recovered/Resolved]
